FAERS Safety Report 8044374-1 (Version None)
Quarter: 2012Q1

REPORT INFORMATION
  Report Type: 
  Country: None (occurrence: None)
  Receive Date: 20120111
  Receipt Date: 20120111
  Transmission Date: 20120608
  Serious: No
  Sender: FDA-Public Use
  Company Number: None

PATIENT
  Sex: Male
  Weight: 96.1626 kg

DRUGS (1)
  1. LEVOTHYROXINE SODIUM [Suspect]
     Indication: HYPOTHYROIDISM
     Dosage: 100 MCG DAILY ORAL
     Route: 048
     Dates: start: 20091104, end: 20110104

REACTIONS (5)
  - PRODUCT SUBSTITUTION ISSUE [None]
  - SOMNOLENCE [None]
  - DRUG INTOLERANCE [None]
  - LETHARGY [None]
  - LABORATORY TEST ABNORMAL [None]
